FAERS Safety Report 17426163 (Version 1)
Quarter: 2020Q1

REPORT INFORMATION
  Report Type: Spontaneous
  Country: GB (occurrence: GB)
  Receive Date: 20200218
  Receipt Date: 20200218
  Transmission Date: 20200409
  Serious: Yes (Disabling, Congenital Anomaly, Other)
  Sender: FDA-Public Use
  Company Number: GB-AUROBINDO-AUR-APL-2020-007664

PATIENT
  Age: 28 Year
  Sex: Female
  Weight: 62.59 kg

DRUGS (1)
  1. MIRTAZAPINE. [Suspect]
     Active Substance: MIRTAZAPINE
     Indication: BIPOLAR DISORDER
     Dosage: 30 MILLIGRAM
     Route: 048
     Dates: start: 20170830, end: 20200118

REACTIONS (4)
  - Menstruation irregular [Not Recovered/Not Resolved]
  - Anovulatory cycle [Unknown]
  - Biochemical pregnancy [Unknown]
  - Menorrhagia [Unknown]

NARRATIVE: CASE EVENT DATE: 20170901
